FAERS Safety Report 8871709 (Version 1)
Quarter: 2012Q4

REPORT INFORMATION
  Report Type: 
  Country: US (occurrence: US)
  Receive Date: 20121026
  Receipt Date: 20121026
  Transmission Date: 20130627
  Serious: No
  Sender: FDA-Public Use
  Company Number: US-AMGEN-USASP2012048538

PATIENT
  Age: 87 Year
  Sex: Male

DRUGS (7)
  1. ENBREL [Suspect]
     Indication: PRODUCT USED FOR UNKNOWN INDICATION
     Dosage: 25 mg, 2 times/wk
     Route: 058
  2. METHOTREXATE [Concomitant]
     Dosage: 2.5 mg, UNK
  3. PREDNISONE [Concomitant]
     Dosage: 5 mg, UNK
  4. SPIRIVA HANDIHALER [Concomitant]
     Dosage: UNK
  5. ACIPHEX [Concomitant]
     Dosage: 20 mg, UNK
  6. ALLERGY                            /00000402/ [Concomitant]
     Dosage: 25 mg, UNK
  7. HYDROCODONE/HOMATROP [Concomitant]
     Dosage: UNK

REACTIONS (4)
  - Oedema peripheral [Unknown]
  - Arthropod bite [Unknown]
  - Fall [Unknown]
  - Rib fracture [Unknown]
